FAERS Safety Report 26074542 (Version 1)
Quarter: 2025Q4

REPORT INFORMATION
  Report Type: Spontaneous
  Country: US (occurrence: None)
  Receive Date: 20251120
  Receipt Date: 20251120
  Transmission Date: 20260118
  Serious: Yes (Hospitalization)
  Sender: FDA-CTU
  Company Number: None

PATIENT
  Age: 56 Year
  Sex: Female

DRUGS (1)
  1. BOSULIF [Suspect]
     Active Substance: BOSUTINIB MONOHYDRATE
     Indication: Chronic myeloid leukaemia
     Dosage: FREQUENCY : DAILY;?

REACTIONS (9)
  - Diarrhoea [None]
  - Dehydration [None]
  - Hot flush [None]
  - Laboratory test abnormal [None]
  - Weight increased [None]
  - Movement disorder [None]
  - Product dose omission in error [None]
  - Asthenia [None]
  - Sleep disorder [None]
